FAERS Safety Report 5347492-1 (Version None)
Quarter: 2007Q2

REPORT INFORMATION
  Report Type: 
  Country: None (occurrence: None)
  Receive Date: 20070606
  Receipt Date: 20070604
  Transmission Date: 20071010
  Serious: Yes (Hospitalization)
  Sender: FDA-Public Use
  Company Number: US-BAYER-200711724BWH

PATIENT
  Age: 46 Year
  Sex: Female

DRUGS (11)
  1. NEXAVAR [Suspect]
     Indication: RENAL CELL CARCINOMA STAGE UNSPECIFIED
     Route: 048
     Dates: start: 20070514, end: 20070529
  2. MICARDIS [Concomitant]
  3. FOLTAB [Concomitant]
  4. LEVOTHYROXINE SODIUM [Concomitant]
  5. HYDROCHLOROTHIAZIDE [Concomitant]
  6. FLUCONAZOLE [Concomitant]
  7. TOPROL-XL [Concomitant]
  8. LORAZEPAM [Concomitant]
     Dosage: TOTAL DAILY DOSE: 2.0 MG
  9. HYDROCODONE WITH ACETAMINOPHEN [Concomitant]
  10. ALBUTEROL [Concomitant]
     Dosage: TOTAL DAILY DOSE: 8 PUFF
  11. FLONASE [Concomitant]

REACTIONS (2)
  - HYPOVOLAEMIA [None]
  - RENAL FAILURE ACUTE [None]
